FAERS Safety Report 8810223 (Version 1)
Quarter: 2012Q4

REPORT INFORMATION
  Report Type: 
  Country: HT (occurrence: HT)
  Receive Date: 20120926
  Receipt Date: 20120926
  Transmission Date: 20130627
  Serious: Yes (Death)
  Sender: FDA-Public Use
  Company Number: PHHY2009HT070763

PATIENT
  Sex: Female

DRUGS (2)
  1. GLIVEC [Suspect]
     Indication: CHRONIC MYELOID LEUKAEMIA
     Dosage: UNK
     Dates: start: 20060524
  2. ANTIBIOTICS [Suspect]

REACTIONS (1)
  - Pneumonia [Fatal]
